FAERS Safety Report 10261357 (Version 1)
Quarter: 2014Q2

REPORT INFORMATION
  Report Type: Spontaneous
  Country: US (occurrence: US)
  Receive Date: 20140626
  Receipt Date: 20140626
  Transmission Date: 20141212
  Serious: Yes (Hospitalization)
  Sender: FDA-Public Use
  Company Number: US-BAYER-2014-094732

PATIENT
  Age: 35 Year
  Sex: Female
  Weight: 90.7 kg

DRUGS (11)
  1. YASMIN [Suspect]
  2. VICODIN [Concomitant]
     Indication: PAIN
     Dosage: 500 MG  EVERY 4 HOURS
  3. HYDROCODONE W/APAP [Concomitant]
     Dosage: 5MG/500MG TABS 1 TO 2 EVERY 4 TO 6 HRS WHEN NEEDED
     Route: 048
  4. IBUPROFEN [Concomitant]
     Dosage: 600 MG, QID
     Route: 048
  5. CLINDAMYCIN [Concomitant]
     Dosage: 300 MG, QID
     Route: 048
  6. WELLBUTRIN [Concomitant]
     Dosage: DAILY
  7. ALBUTEROL [Concomitant]
  8. LISINOPRIL [Concomitant]
  9. LORIDINE [Concomitant]
     Dosage: DAILY
  10. VICOPROFEN [Concomitant]
     Dosage: 500/800
  11. MOTRIN [Concomitant]
     Dosage: 800 MG, TID

REACTIONS (2)
  - Pulmonary embolism [None]
  - Deep vein thrombosis [None]
